FAERS Safety Report 10648923 (Version 1)
Quarter: 2014Q4

REPORT INFORMATION
  Report Type: Report from Study
  Country: US (occurrence: US)
  Receive Date: 20141212
  Receipt Date: 20141212
  Transmission Date: 20150529
  Serious: Yes (Death)
  Sender: FDA-Public Use
  Company Number: US-SA-2014SA170252

PATIENT

DRUGS (2)
  1. IPILIMUMAB [Suspect]
     Active Substance: IPILIMUMAB
     Indication: METASTATIC MALIGNANT MELANOMA
     Dosage: ON DAYS 1 TO 14 OF A 21 DAY CYCLE
     Route: 042
  2. SARGRAMOSTIM [Suspect]
     Active Substance: SARGRAMOSTIM
     Indication: METASTATIC MALIGNANT MELANOMA
     Dosage: ON DAYS 1 TO 14 OF A 21 DAY CYCLE
     Route: 058

REACTIONS (1)
  - Cardiac arrest [Fatal]
